FAERS Safety Report 4640441-0 (Version None)
Quarter: 2005Q2

REPORT INFORMATION
  Report Type: 
  Country: None (occurrence: None)
  Receive Date: 20050419
  Receipt Date: 20050406
  Transmission Date: 20051028
  Serious: Yes (Hospitalization, Other)
  Sender: FDA-Public Use
  Company Number: 2005056152

PATIENT
  Sex: Female

DRUGS (6)
  1. CORTEF [Suspect]
     Indication: ENDOCRINE DISORDER
     Dosage: 37.5 MG, ORAL
     Route: 048
     Dates: start: 19900101
  2. SOLU-CORTEF [Suspect]
     Indication: ENDOCRINE DISORDER
     Dosage: INTRAVENOUS
     Route: 042
  3. LEVOTHYROXINE SODIUM [Suspect]
     Indication: THYROID DISORDER
     Dosage: ORAL
     Route: 048
  4. POTASSIUM ACETATE [Concomitant]
  5. MAGNESIUM (MAGNESIUM) [Concomitant]
  6. ALL OTHER THERAPEUTIC PRODUCTS (ALL OTHER THERAPEUTIC PRODUCTS) [Concomitant]

REACTIONS (6)
  - ADRENAL DISORDER [None]
  - DRUG INEFFECTIVE [None]
  - DRUG INTERACTION [None]
  - DRUG LEVEL DECREASED [None]
  - INFECTION [None]
  - ROAD TRAFFIC ACCIDENT [None]
